FAERS Safety Report 15260759 (Version 2)
Quarter: 2018Q3

REPORT INFORMATION
  Report Type: Report from Study
  Country: MX (occurrence: MX)
  Receive Date: 20180809
  Receipt Date: 20180909
  Transmission Date: 20181010
  Serious: No
  Sender: FDA-Public Use
  Company Number: PHHY2018MX068120

PATIENT
  Sex: Female

DRUGS (4)
  1. TOPIRAMATE. [Concomitant]
     Active Substance: TOPIRAMATE
     Indication: CEREBRAL DISORDER
     Dosage: 0.5 DF, QD (5 YEARS AGO, APPROXIMATELY)
     Route: 065
     Dates: end: 20180801
  2. LYRICA [Concomitant]
     Active Substance: PREGABALIN
     Indication: ANGINA PECTORIS
     Dosage: 1 DF, QD (2 YEARS AGO APPROXIMATELY)
     Route: 065
     Dates: end: 20180801
  3. EXFORGE HCT [Suspect]
     Active Substance: AMLODIPINE BESYLATE\HYDROCHLOROTHIAZIDE\VALSARTAN
     Indication: HYPERTENSION
     Dosage: 1 DF (AMLODIPINE 10 MG, HYDROCHLOROTHIAZIDE 25 MG, VALSARTAN 320 MG), QD
     Route: 048
     Dates: start: 20171001, end: 20180728
  4. CLAUTER [Concomitant]
     Indication: ISCHAEMIA
     Dosage: 1 DF, QD (3 MONTHS AGO)
     Route: 048

REACTIONS (1)
  - No adverse event [Unknown]
